FAERS Safety Report 14269807 (Version 1)
Quarter: 2017Q4

REPORT INFORMATION
  Report Type: Spontaneous
  Country: US (occurrence: US)
  Receive Date: 20171211
  Receipt Date: 20171211
  Transmission Date: 20180321
  Serious: Yes (Other)
  Sender: FDA-Public Use
  Company Number: US-OTSUKA-2017_003621

PATIENT

DRUGS (1)
  1. ABILIFY [Suspect]
     Active Substance: ARIPIPRAZOLE
     Indication: PRODUCT USED FOR UNKNOWN INDICATION
     Dosage: UNK
     Route: 065
     Dates: start: 20130719, end: 20160804

REACTIONS (5)
  - Obsessive-compulsive disorder [Unknown]
  - Gambling [Recovered/Resolved]
  - Mental disorder [Unknown]
  - Brain injury [Unknown]
  - Injury [Unknown]
